FAERS Safety Report 6429783-6 (Version None)
Quarter: 2009Q4

REPORT INFORMATION
  Report Type: 
  Country: None (occurrence: None)
  Receive Date: 20091106
  Receipt Date: 20091026
  Transmission Date: 20100525
  Serious: Yes (Other)
  Sender: FDA-Public Use
  Company Number: PHHY2009CA46382

PATIENT

DRUGS (1)
  1. ACLASTA [Suspect]

REACTIONS (1)
  - SYNCOPE [None]
